FAERS Safety Report 8134281-8 (Version None)
Quarter: 2012Q1

REPORT INFORMATION
  Report Type: 
  Country: None (occurrence: None)
  Receive Date: 20120208
  Receipt Date: 20120123
  Transmission Date: 20120608
  Serious: Yes (Hospitalization, Disabling, Other)
  Sender: FDA-Public Use
  Company Number: TRAZ20120002

PATIENT
  Age: 72 Year
  Sex: Male

DRUGS (3)
  1. TRAZODONE HYDROCHLORIDE [Suspect]
     Indication: DEPRESSION
     Dosage: 300 MG DAILY, ORAL
     Route: 048
  2. BUPROPION HCL [Suspect]
     Indication: DEPRESSION
     Dosage: 300 MG DAILY, ORAL
     Route: 048
  3. LITHIUM CARBONATE [Suspect]
     Indication: DEPRESSION
     Dosage: ORAL
     Route: 048

REACTIONS (11)
  - DELIRIUM [None]
  - METABOLIC ENCEPHALOPATHY [None]
  - DEPRESSION [None]
  - SUICIDE ATTEMPT [None]
  - BLOOD CREATININE DECREASED [None]
  - ATAXIA [None]
  - DRUG INTERACTION [None]
  - WEIGHT INCREASED [None]
  - CONDITION AGGRAVATED [None]
  - NEUROTOXICITY [None]
  - TREMOR [None]
